FAERS Safety Report 20876536 (Version 1)
Quarter: 2022Q2

REPORT INFORMATION
  Report Type: Spontaneous
  Country: US (occurrence: None)
  Receive Date: 20220525
  Receipt Date: 20220525
  Transmission Date: 20220721
  Serious: Yes (Hospitalization)
  Sender: FDA-Public Use
  Company Number: None

PATIENT
  Age: 72 Year
  Sex: Female
  Weight: 142.88 kg

DRUGS (12)
  1. ACYCLOVIR [Concomitant]
     Active Substance: ACYCLOVIR
  2. amlodipine Besy-Benazepril HCI [Concomitant]
  3. ATORVASTATIN CALCIUM [Concomitant]
     Active Substance: ATORVASTATIN CALCIUM
  4. DEXAMETHASONE [Concomitant]
     Active Substance: DEXAMETHASONE
  5. GABAPENTIN [Concomitant]
  6. MELOXICAM [Concomitant]
     Active Substance: MELOXICAM
  7. ONDANSETRON [Concomitant]
  8. OXYBUTYNIN CHLORIDE [Concomitant]
     Active Substance: OXYBUTYNIN CHLORIDE
  9. oxyxodone HCI [Concomitant]
  10. chlorperazine  MALEATE [Concomitant]
  11. ZOMETA [Concomitant]
     Active Substance: ZOLEDRONIC ACID
  12. LENALIDOMIDE [Suspect]
     Active Substance: LENALIDOMIDE
     Indication: Plasma cell myeloma

REACTIONS (1)
  - Hospitalisation [None]
